FAERS Safety Report 12832018 (Version 1)
Quarter: 2016Q4

REPORT INFORMATION
  Report Type: Spontaneous
  Country: US (occurrence: US)
  Receive Date: 20161010
  Receipt Date: 20161010
  Transmission Date: 20170207
  Serious: No
  Sender: FDA-Public Use
  Company Number: US-ASTRAZENECA-2016SF04151

PATIENT
  Age: 56 Year
  Sex: Female
  Weight: 104.3 kg

DRUGS (5)
  1. BYDUREON [Suspect]
     Active Substance: EXENATIDE
     Indication: TYPE 2 DIABETES MELLITUS
     Route: 058
     Dates: start: 201609
  2. TRIAMTERENE HCTZ [Concomitant]
     Active Substance: HYDROCHLOROTHIAZIDE\TRIAMTERENE
     Indication: DIURETIC THERAPY
     Dosage: 37.5-25 MG STARTED A LONG TIME AGO
     Route: 048
  3. LATANOPROST. [Concomitant]
     Active Substance: LATANOPROST
     Indication: GLAUCOMA
     Route: 047
     Dates: start: 2001
  4. PRAVASTATIN. [Concomitant]
     Active Substance: PRAVASTATIN
     Dosage: 20.0MG UNKNOWN
     Route: 048
     Dates: start: 2016
  5. LISINOPRIL. [Suspect]
     Active Substance: LISINOPRIL
     Dosage: 20.0MG UNKNOWN
     Route: 048

REACTIONS (2)
  - Injection site mass [Unknown]
  - Glaucoma [Unknown]

NARRATIVE: CASE EVENT DATE: 2001
